FAERS Safety Report 4832293-0 (Version None)
Quarter: 2005Q4

REPORT INFORMATION
  Report Type: 
  Country: None (occurrence: None)
  Receive Date: 20051114
  Receipt Date: 20051026
  Transmission Date: 20060501
  Serious: Yes (Hospitalization, Other)
  Sender: FDA-Public Use
  Company Number: US152936

PATIENT
  Age: 74 Year
  Sex: Female
  Weight: 71.7 kg

DRUGS (6)
  1. ENBREL [Suspect]
     Indication: RHEUMATOID ARTHRITIS
     Dosage: 50 MG, 1 IN 1 WEEKS
     Dates: start: 20010920, end: 20050712
  2. ALENDRONATE SODIUM [Concomitant]
  3. ERGOCALCIFEROL [Concomitant]
  4. CALCIUM GLUCONATE [Concomitant]
  5. CELECOXIB [Concomitant]
  6. AZATHIOPRINE [Concomitant]

REACTIONS (3)
  - ANAEMIA [None]
  - COLITIS ULCERATIVE [None]
  - DIVERTICULUM [None]
